FAERS Safety Report 9771818 (Version 1)
Quarter: 2013Q3

REPORT INFORMATION
  Report Type: Spontaneous
  Country: IN (occurrence: None)
  Receive Date: 20130920
  Receipt Date: 20130920
  Transmission Date: 20140515
  Serious: Yes (Death, Hospitalization)
  Sender: FDA-Public Use
  Company Number: 2013-15848

PATIENT
  Age: 39 Year
  Sex: Male
  Weight: 50 kg

DRUGS (2)
  1. TOPIRAMATE [Suspect]
     Indication: PRODUCT USED FOR UNKNOWN INDICATION
     Route: 048
     Dates: start: 20130722, end: 20130825
  2. TOPAMAX (TOPIRAMATE) [Suspect]
     Indication: PRODUCT USED FOR UNKNOWN INDICATION
     Route: 048
     Dates: start: 20130722, end: 20130825

REACTIONS (25)
  - Pyrexia [None]
  - Local swelling [None]
  - Skin erosion [None]
  - Skin discolouration [None]
  - Septic shock [None]
  - Cardiac arrest [None]
  - Ventricular fibrillation [None]
  - Limb discomfort [None]
  - Malaise [None]
  - Musculoskeletal stiffness [None]
  - Oxygen saturation decreased [None]
  - Coagulopathy [None]
  - Snake bite [None]
  - Arthropod bite [None]
  - Aspartate aminotransferase increased [None]
  - Alanine aminotransferase increased [None]
  - Blood urea increased [None]
  - Blood uric acid increased [None]
  - Blood calcium increased [None]
  - Blood phosphorus increased [None]
  - Blood potassium increased [None]
  - Prothrombin time prolonged [None]
  - Activated partial thromboplastin time prolonged [None]
  - Blood creatine phosphokinase increased [None]
  - General physical health deterioration [None]
